FAERS Safety Report 6601852-7 (Version None)
Quarter: 2010Q1

REPORT INFORMATION
  Report Type: 
  Country: None (occurrence: None)
  Receive Date: 20100218
  Receipt Date: 20100210
  Transmission Date: 20100710
  Serious: Yes (Death, Hospitalization)
  Sender: FDA-Public Use
  Company Number: WAES 1001USA03633

PATIENT
  Age: 71 Year
  Sex: Female

DRUGS (9)
  1. CAP VORINOSTAT [Suspect]
     Indication: MULTIPLE MYELOMA
     Dosage: 400 MG/DAILY, PO
     Route: 048
     Dates: start: 20100112, end: 20100124
  2. VELCADE [Suspect]
     Indication: MULTIPLE MYELOMA
     Dosage: 2.2 MG/1X, IV
     Route: 042
     Dates: start: 20100112, end: 20100112
  3. VELCADE [Suspect]
     Indication: MULTIPLE MYELOMA
     Dosage: 2.2 MG/1X, IV
     Route: 042
     Dates: start: 20100115, end: 20100115
  4. VELCADE [Suspect]
     Indication: MULTIPLE MYELOMA
     Dosage: 2.2 MG/1X, IV
     Route: 042
     Dates: start: 20100119, end: 20100119
  5. VELCADE [Suspect]
     Indication: MULTIPLE MYELOMA
     Dosage: 2.2 MG/1X, IV
     Route: 042
     Dates: start: 20100122, end: 20100122
  6. LASIX [Concomitant]
  7. ACYCLOVIR [Concomitant]
  8. ALLOPURINOL [Concomitant]
  9. SULFAMETHOXAZOLE AND TRIMETHOPRIM [Concomitant]

REACTIONS (6)
  - ANAEMIA [None]
  - ASTHENIA [None]
  - CEREBRAL HAEMORRHAGE [None]
  - PERFORMANCE STATUS DECREASED [None]
  - THROMBOCYTOPENIA [None]
  - WHITE BLOOD CELL COUNT DECREASED [None]
